FAERS Safety Report 18298314 (Version 2)
Quarter: 2020Q4

REPORT INFORMATION
  Report Type: Spontaneous
  Country: US (occurrence: US)
  Receive Date: 20200922
  Receipt Date: 20201026
  Transmission Date: 20210113
  Serious: No
  Sender: FDA-Public Use
  Company Number: US-PFIZER INC-2020363687

PATIENT
  Age: 64 Year
  Sex: Female

DRUGS (2)
  1. TALZENNA [Suspect]
     Active Substance: TALAZOPARIB TOSYLATE
     Dosage: UNK
     Dates: start: 202005, end: 202008
  2. TALZENNA [Suspect]
     Active Substance: TALAZOPARIB TOSYLATE
     Dosage: UNK
     Dates: start: 202009

REACTIONS (14)
  - Headache [Unknown]
  - Visual impairment [Recovered/Resolved]
  - Dizziness [Recovered/Resolved]
  - Pain [Unknown]
  - Feeling jittery [Recovered/Resolved]
  - Fatigue [Unknown]
  - Feeling abnormal [Recovered/Resolved]
  - Malaise [Unknown]
  - Asthenia [Unknown]
  - White blood cell count decreased [Recovering/Resolving]
  - Blood glucose decreased [Recovered/Resolved]
  - Osteoporosis [Unknown]
  - Red blood cell count decreased [Recovered/Resolved]
  - Somnolence [Unknown]
